FAERS Safety Report 10391850 (Version 2)
Quarter: 2014Q3

REPORT INFORMATION
  Report Type: Report from Study
  Country: JP (occurrence: JP)
  Receive Date: 20140819
  Receipt Date: 20140901
  Transmission Date: 20150326
  Serious: Yes (Death)
  Sender: FDA-Public Use
  Company Number: JP-AMGEN-JPNCT2014062772

PATIENT
  Sex: Male
  Weight: 66 kg

DRUGS (3)
  1. DENOTAS [Concomitant]
     Active Substance: CALCIUM CARBONATE\CHOLECALCIFEROL\MAGNESIUM CARBONATE
     Indication: HYPOCALCAEMIA
     Dosage: 2 DF, UNK
     Route: 048
     Dates: start: 20140110
  2. DENOSUMAB [Suspect]
     Active Substance: DENOSUMAB
     Indication: OSTEOPOROSIS
     Dosage: 60 MG, UNK
     Route: 058
     Dates: start: 20140110
  3. LEUPLIN [Concomitant]
     Active Substance: LEUPROLIDE ACETATE
     Dosage: 11.25 MG, UNK
     Route: 058
     Dates: start: 20131011

REACTIONS (1)
  - Death [Fatal]
